FAERS Safety Report 5224063-9 (Version None)
Quarter: 2007Q1

REPORT INFORMATION
  Report Type: 
  Country: None (occurrence: None)
  Receive Date: 20070130
  Receipt Date: 20070126
  Transmission Date: 20070707
  Serious: Yes (Death, Hospitalization, Other)
  Sender: FDA-Public Use
  Company Number: US-BRISTOL-MYERS SQUIBB COMPANY-13627864

PATIENT
  Age: 79 Year
  Sex: Male
  Weight: 66 kg

DRUGS (13)
  1. CETUXIMAB [Suspect]
     Indication: BILIARY CANCER METASTATIC
     Route: 042
     Dates: start: 20061206, end: 20061213
  2. FENTANYL TRANSDERMAL SYSTEM [Concomitant]
  3. DRAMAMINE [Concomitant]
     Route: 048
  4. NIFEDIPINE [Concomitant]
     Route: 048
  5. POTASSIUM CHLORIDE [Concomitant]
     Route: 048
  6. TOPROL-XL [Concomitant]
     Route: 048
  7. LIPITOR [Concomitant]
     Route: 048
  8. FLOMAX [Concomitant]
     Route: 048
  9. REQUIP [Concomitant]
     Route: 048
  10. PHENERGAN [Concomitant]
     Route: 048
  11. VICODIN [Concomitant]
     Dosage: 5/500; ONE TO TWO TABLETS EVERY 4-6 HOURS PRN
     Route: 048
  12. CLEOCIN HYDROCHLORIDE [Concomitant]
  13. HYDROCORTISONE [Concomitant]

REACTIONS (8)
  - BLOOD ALKALINE PHOSPHATASE INCREASED [None]
  - BLOOD BILIRUBIN INCREASED [None]
  - DYSPNOEA [None]
  - FATIGUE [None]
  - HAEMOGLOBIN DECREASED [None]
  - HEADACHE [None]
  - HYPOALBUMINAEMIA [None]
  - MALIGNANT NEOPLASM PROGRESSION [None]
